FAERS Safety Report 22258510 (Version 1)
Quarter: 2023Q2

REPORT INFORMATION
  Report Type: Spontaneous
  Country: US (occurrence: US)
  Receive Date: 20230427
  Receipt Date: 20230427
  Transmission Date: 20230722
  Serious: No
  Sender: FDA-Public Use
  Company Number: US-BRISTOL-MYERS SQUIBB COMPANY-2023-057201

PATIENT
  Age: 85 Year
  Sex: Female

DRUGS (1)
  1. POMALYST [Suspect]
     Active Substance: POMALIDOMIDE
     Indication: Plasma cell myeloma in remission
     Dosage: 2 MG, TAKE 1 CAPSULE (2 MG TOTAL) BY MOUTH EVERY DAY FOR 21 DAYS
     Route: 048
     Dates: start: 20220614

REACTIONS (1)
  - Product dose omission issue [Unknown]
